FAERS Safety Report 6919856-3 (Version None)
Quarter: 2010Q3

REPORT INFORMATION
  Report Type: 
  Country: None (occurrence: None)
  Receive Date: 20100811
  Receipt Date: 20100728
  Transmission Date: 20110219
  Serious: Yes (Death)
  Sender: FDA-Public Use
  Company Number: US-SANOFI-AVENTIS-2010SA046949

PATIENT
  Sex: Female

DRUGS (4)
  1. AMARYL [Suspect]
     Route: 065
  2. NASACORT [Suspect]
     Route: 065
  3. ALLEGRA [Suspect]
     Route: 065
  4. LANTUS [Suspect]
     Route: 058

REACTIONS (1)
  - DEATH [None]
